FAERS Safety Report 10409621 (Version 2)
Quarter: 2014Q4

REPORT INFORMATION
  Report Type: Spontaneous
  Country: US (occurrence: None)
  Receive Date: 20140604
  Receipt Date: 20141010
  Transmission Date: 20150528
  Serious: No
  Sender: FDA-Public Use
  Company Number: 163-POMAL-14050884

PATIENT
  Age: 85 Year
  Sex: Male
  Weight: 72.1 kg

DRUGS (15)
  1. POMALYST [Suspect]
     Active Substance: POMALIDOMIDE
     Indication: PLASMA CELL MYELOMA
     Dosage: 2 MG, 21 IN 21 D, PO
     Route: 048
     Dates: start: 201312
  2. DILTIAZEM [Concomitant]
     Active Substance: DILTIAZEM
  3. ASPIRIN. [Concomitant]
     Active Substance: ASPIRIN
  4. DIGOXIN. [Concomitant]
     Active Substance: DIGOXIN
  5. IRON [Concomitant]
     Active Substance: IRON
  6. VALACYCLOVIR [Concomitant]
     Active Substance: VALACYCLOVIR HYDROCHLORIDE
  7. OMEPRAZOLE. [Concomitant]
     Active Substance: OMEPRAZOLE
  8. LEXAPRO [Concomitant]
     Active Substance: ESCITALOPRAM OXALATE
  9. DEXAMETHASONE. [Concomitant]
     Active Substance: DEXAMETHASONE
  10. FLUDROCORTISONE [Concomitant]
     Active Substance: FLUDROCORTISONE
  11. CALCIUM [Concomitant]
     Active Substance: CALCIUM
  12. LANOXIN [Concomitant]
     Active Substance: DIGOXIN
  13. MULTIVITAMINS [Concomitant]
     Active Substance: VITAMINS
  14. HYOSCYAMINE [Concomitant]
     Active Substance: HYOSCYAMINE
  15. COLACE [Concomitant]
     Active Substance: DOCUSATE SODIUM

REACTIONS (3)
  - Dysuria [None]
  - Neuropathy peripheral [None]
  - Dizziness [None]

NARRATIVE: CASE EVENT DATE: 201404
